FAERS Safety Report 5332807-0 (Version None)
Quarter: 2007Q2

REPORT INFORMATION
  Report Type: 
  Country: None (occurrence: None)
  Receive Date: 20070523
  Receipt Date: 20070514
  Transmission Date: 20071010
  Serious: Yes (Other)
  Sender: FDA-Public Use
  Company Number: FR-PFIZER INC-2007040166

PATIENT
  Sex: Female

DRUGS (1)
  1. LYRICA [Suspect]
     Indication: SCIATICA

REACTIONS (6)
  - CONSTIPATION [None]
  - DYSPEPSIA [None]
  - FLATULENCE [None]
  - INCREASED APPETITE [None]
  - PAIN [None]
  - WEIGHT INCREASED [None]
